FAERS Safety Report 8286612-6 (Version None)
Quarter: 2012Q2

REPORT INFORMATION
  Report Type: 
  Country: None (occurrence: None)
  Receive Date: 20120411
  Receipt Date: 20120328
  Transmission Date: 20120825
  Serious: Yes (Life-Threatening, Other)
  Sender: FDA-Public Use
  Company Number: 2012P1003737

PATIENT
  Age: 64 Year
  Sex: Male

DRUGS (6)
  1. CHLORHEXIDINE GLUCONATE [Suspect]
     Indication: INFECTION PROPHYLAXIS
     Dosage: CUT
     Route: 003
     Dates: start: 20111215, end: 20111215
  2. MIDAZOLAM [Suspect]
     Indication: ANAESTHESIA PROCEDURE
     Dosage: 7.5 MG; IV
     Route: 042
     Dates: start: 20111215, end: 20111215
  3. CISATRACURIUM BESYLATE [Suspect]
     Indication: ANAESTHESIA PROCEDURE
     Dosage: 16 MG; IV
     Route: 042
     Dates: start: 20111215, end: 20111215
  4. THIOPENTAL SODIUM [Suspect]
     Indication: ANAESTHESIA PROCEDURE
     Dosage: 300 MG; IV
     Route: 042
     Dates: start: 20111215, end: 20111215
  5. FENTANYL CITRATE [Suspect]
     Indication: ANAESTHESIA PROCEDURE
     Dosage: 300 MCG; IV
     Route: 042
     Dates: start: 20111215, end: 20111215
  6. SOLU-MEDROL [Suspect]
     Indication: ANEURYSM REPAIR
     Dosage: 2 GM
     Dates: start: 20111215, end: 20111215

REACTIONS (3)
  - BLOOD PRESSURE SYSTOLIC INCREASED [None]
  - URTICARIA [None]
  - HYPOTENSION [None]
